FAERS Safety Report 5633873-5 (Version None)
Quarter: 2008Q1

REPORT INFORMATION
  Report Type: 
  Country: None (occurrence: None)
  Receive Date: 20080221
  Receipt Date: 20080219
  Transmission Date: 20080703
  Serious: Yes (Other)
  Sender: FDA-Public Use
  Company Number: JP-BOEHRINGER INGELHEIM GMBH, GERMANY-2008-BP-02432RO

PATIENT
  Age: 39 Year
  Sex: Female

DRUGS (6)
  1. METHOTREXATE [Suspect]
     Indication: PROPHYLAXIS AGAINST GRAFT VERSUS HOST DISEASE
  2. DEXAMETHASONE TAB [Suspect]
     Indication: LEUKAEMIA PLASMACYTIC
  3. CYCLOSPORINE [Suspect]
     Indication: PROPHYLAXIS AGAINST GRAFT VERSUS HOST DISEASE
  4. VINCRISTINE [Suspect]
     Indication: LEUKAEMIA PLASMACYTIC
     Route: 042
  5. DOXORUBICIN HCL [Suspect]
     Indication: LEUKAEMIA PLASMACYTIC
     Route: 042
  6. MELPHALAN [Suspect]
     Indication: BONE MARROW CONDITIONING REGIMEN

REACTIONS (8)
  - CHRONIC GRAFT VERSUS HOST DISEASE [None]
  - DEAFNESS NEUROSENSORY [None]
  - EAR PAIN [None]
  - FACIAL PALSY [None]
  - PLASMACYTOMA [None]
  - VERTIGO [None]
  - VESTIBULAR DISORDER [None]
  - VOMITING [None]
